FAERS Safety Report 14660332 (Version 1)
Quarter: 2018Q1

REPORT INFORMATION
  Report Type: Report from Study
  Country: BR (occurrence: BR)
  Receive Date: 20180320
  Receipt Date: 20180320
  Transmission Date: 20180509
  Serious: Yes (Life-Threatening, Other)
  Sender: FDA-Public Use
  Company Number: PHHY2018BR047805

PATIENT
  Sex: Female
  Weight: 62 kg

DRUGS (1)
  1. ACLASTA [Suspect]
     Active Substance: ZOLEDRONIC ACID
     Indication: OSTEOPENIA
     Dosage: 1 DF (5MG/ 100ML), Q12MO
     Route: 042

REACTIONS (7)
  - Vomiting [Recovering/Resolving]
  - Hepatitis [Recovering/Resolving]
  - Feeling abnormal [Recovering/Resolving]
  - Labyrinthitis [Recovering/Resolving]
  - Dysstasia [Recovering/Resolving]
  - Body height decreased [Unknown]
  - Weight increased [Unknown]
